FAERS Safety Report 23322772 (Version 5)
Quarter: 2024Q1

REPORT INFORMATION
  Report Type: Report from Study
  Country: IL (occurrence: IL)
  Receive Date: 20231220
  Receipt Date: 20240205
  Transmission Date: 20240409
  Serious: Yes (Hospitalization, Other)
  Sender: FDA-Public Use
  Company Number: IL-GILEAD-2023-0654600

PATIENT
  Sex: Female
  Weight: 50 kg

DRUGS (3)
  1. SACITUZUMAB GOVITECAN-HZIY [Suspect]
     Active Substance: SACITUZUMAB GOVITECAN-HZIY
     Indication: Triple negative breast cancer
     Dosage: UNK
     Route: 065
  2. SACITUZUMAB GOVITECAN-HZIY [Suspect]
     Active Substance: SACITUZUMAB GOVITECAN-HZIY
     Dosage: 600 MG REDUCED DOSE
     Route: 065
  3. PAPAVERINE [Concomitant]
     Active Substance: PAPAVERINE
     Indication: Abdominal pain
     Dosage: 80 MG, BID
     Route: 048
     Dates: start: 20231204, end: 20231211

REACTIONS (4)
  - Clostridium difficile colitis [Recovered/Resolved]
  - Febrile neutropenia [Recovered/Resolved]
  - Disease progression [Unknown]
  - Bone pain [Unknown]

NARRATIVE: CASE EVENT DATE: 20231204
